FAERS Safety Report 4869274-7 (Version None)
Quarter: 2005Q4

REPORT INFORMATION
  Report Type: 
  Country: None (occurrence: None)
  Receive Date: 20051223
  Receipt Date: 20051215
  Transmission Date: 20060501
  Serious: Yes (Hospitalization)
  Sender: FDA-Public Use
  Company Number: HQWYE064216DEC05

PATIENT
  Age: 76 Year
  Sex: Male

DRUGS (9)
  1. CORDARONE [Suspect]
     Indication: VENTRICULAR TACHYCARDIA
     Dosage: 200 MG 5X PER 1 WK ORAL
     Route: 048
     Dates: start: 20040415, end: 20050720
  2. ASPIRIN [Concomitant]
  3. AMARYL [Concomitant]
  4. EXOMUC (ACETYLCYSTEINE) [Concomitant]
  5. FOSINOPRIL SODIUM [Concomitant]
  6. REQUIP [Concomitant]
  7. SIBELIUM (FLUNARIZINE DIHYDROCHLORIDE) [Concomitant]
  8. ZOCOR [Concomitant]
  9. IDEOS (CALCIUM CARBONATE/COLECALCIFEROL) [Concomitant]

REACTIONS (3)
  - ABDOMINAL PAIN [None]
  - INTERSTITIAL LUNG DISEASE [None]
  - VERTIGO [None]
